FAERS Safety Report 16042975 (Version 1)
Quarter: 2019Q1

REPORT INFORMATION
  Report Type: Report from Study
  Country: None (occurrence: US)
  Receive Date: 20190306
  Receipt Date: 20190306
  Transmission Date: 20190418
  Serious: Yes (Other)
  Sender: FDA-Public Use
  Company Number: US-ABBVIE-18K-163-2513061-00

PATIENT
  Age: 40 Year
  Sex: Female

DRUGS (2)
  1. HUMIRA [Suspect]
     Active Substance: ADALIMUMAB
     Indication: PSORIATIC ARTHROPATHY
     Route: 058
     Dates: start: 20180824
  2. HUMIRA [Suspect]
     Active Substance: ADALIMUMAB
     Route: 058
     Dates: start: 20190227

REACTIONS (18)
  - Joint stiffness [Unknown]
  - Arthralgia [Unknown]
  - Pain [Unknown]
  - Hypoaesthesia [Unknown]
  - Pyrexia [Recovered/Resolved]
  - Dyspnoea [Unknown]
  - Joint swelling [Unknown]
  - Drug effect decreased [Unknown]
  - Paraesthesia [Unknown]
  - Myalgia [Unknown]
  - Fatigue [Unknown]
  - Anxiety [Unknown]
  - Discomfort [Unknown]
  - Pain in extremity [Unknown]
  - Nasopharyngitis [Recovered/Resolved]
  - Adrenal neoplasm [Unknown]
  - Depression [Not Recovered/Not Resolved]
  - Productive cough [Recovered/Resolved]

NARRATIVE: CASE EVENT DATE: 2018
